FAERS Safety Report 8056010-9 (Version None)
Quarter: 2011Q4

REPORT INFORMATION
  Report Type: 
  Country: None (occurrence: None)
  Receive Date: 20111216
  Receipt Date: 20110208
  Transmission Date: 20120403
  Serious: Yes (Hospitalization)
  Sender: FDA-Public Use
  Company Number: 266448USA

PATIENT
  Age: 32 Year
  Sex: Female
  Weight: 54.4316 kg

DRUGS (2)
  1. PARAGARD T 380A [Suspect]
     Indication: CONTRACEPTION
     Dosage: I.U.
     Dates: start: 20020101, end: 20070101
  2. METRONIDAZOLE [Concomitant]

REACTIONS (3)
  - FALLOPIAN TUBE DISORDER [None]
  - PELVIC INFLAMMATORY DISEASE [None]
  - KIDNEY INFECTION [None]
